FAERS Safety Report 24570603 (Version 2)
Quarter: 2024Q4

REPORT INFORMATION
  Report Type: Report from Study
  Country: US (occurrence: US)
  Receive Date: 20241031
  Receipt Date: 20241107
  Transmission Date: 20250115
  Serious: Yes (Hospitalization)
  Sender: JOHNSON AND JOHNSON
  Company Number: US-JNJFOC-20241079152

PATIENT
  Age: 36 Year
  Sex: Female

DRUGS (4)
  1. SELEXIPAG [Suspect]
     Active Substance: SELEXIPAG
     Indication: Pulmonary arterial hypertension
     Dosage: 600MCG IN THE MORNING AND 800MCG THE EVENING
     Route: 048
     Dates: start: 202109
  2. TADALAFIL [Concomitant]
     Active Substance: TADALAFIL
  3. AMBRISENTAN [Concomitant]
     Active Substance: AMBRISENTAN
  4. WINREVAIR [Concomitant]
     Active Substance: SOTATERCEPT-CSRK

REACTIONS (4)
  - Meningitis [Unknown]
  - Infection [Unknown]
  - Surgery [Unknown]
  - Weight increased [Unknown]

NARRATIVE: CASE EVENT DATE: 20241024
